FAERS Safety Report 6959292-7 (Version None)
Quarter: 2010Q3

REPORT INFORMATION
  Report Type: 
  Country: None (occurrence: None)
  Receive Date: 20100831
  Receipt Date: 20100817
  Transmission Date: 20110219
  Serious: No
  Sender: FDA-Public Use
  Company Number: US-PFIZER INC-2010104233

PATIENT
  Sex: Male

DRUGS (3)
  1. TRIAZOLAM [Suspect]
     Indication: TOOTH EXTRACTION
     Dosage: 0.25 MG TWO TABLETS, UNK
     Route: 048
  2. TRIAZOLAM [Suspect]
     Dosage: 1.50 MG, UNK
     Route: 048
  3. TRIAZOLAM [Suspect]
     Dosage: 3.50 MG, UNK
     Route: 048

REACTIONS (3)
  - DRUG INEFFECTIVE [None]
  - INCORRECT DOSE ADMINISTERED [None]
  - PRURITUS [None]
